FAERS Safety Report 9241007 (Version 1)
Quarter: 2013Q1

REPORT INFORMATION
  Report Type: Spontaneous
  Country: US (occurrence: None)
  Receive Date: 20121120
  Receipt Date: 20121120
  Transmission Date: 20140127
  Serious: No
  Sender: FDA-Public Use
  Company Number: 1000039414

PATIENT
  Age: 68 Year
  Sex: Male

DRUGS (7)
  1. VIIBRYD [Suspect]
     Indication: DEPRESSION
     Route: 048
     Dates: start: 201209, end: 201210
  2. WARFARIN (WARFARIN) (WARFARIN) [Concomitant]
  3. DIGOXIN (DIGOXIN) (DIGOXIN) [Concomitant]
  4. VYTORIN (INEGY) (INEGY) [Concomitant]
  5. TRICOR (FENOFIBRATE) (FENOFIBRATE) [Concomitant]
  6. BUDESONIDE (BUDESONIDE) (BUDESONIDE) [Concomitant]
  7. OMEPRAZOLE (OMEPRAZOLE) (OMEPRAZOLE) [Concomitant]

REACTIONS (2)
  - Dyspnoea [None]
  - Insomnia [None]
